FAERS Safety Report 25378655 (Version 2)
Quarter: 2025Q2

REPORT INFORMATION
  Report Type: Spontaneous
  Country: US (occurrence: US)
  Receive Date: 20250530
  Receipt Date: 20250627
  Transmission Date: 20250717
  Serious: No
  Sender: ROCHE
  Company Number: US-ROCHE-10000292976

PATIENT
  Sex: Female

DRUGS (24)
  1. XOLAIR PFS [Suspect]
     Active Substance: OMALIZUMAB
     Indication: Cushing^s syndrome
     Dosage: STRENGTH: 150MG/ML
     Route: 058
     Dates: start: 20250421
  2. XOLAIR PFS [Suspect]
     Active Substance: OMALIZUMAB
  3. ALBUTEROL SU [Concomitant]
  4. AMLODIPINE B TAB [Concomitant]
  5. AMLODIPINE B TAB [Concomitant]
  6. BUDESONiDE SUS O.5 MG/2ML [Concomitant]
  7. CALCiuM  TAB [Concomitant]
  8. CYANOCOBALAM SOL [Concomitant]
  9. CYCLOBENZAPR TAB [Concomitant]
  10. DESlORATADiN TAB [Concomitant]
  11. LISINOPRIL [Concomitant]
     Active Substance: LISINOPRIL
  12. magnesium TAB [Concomitant]
  13. MONTELUKAST SODIUM [Concomitant]
     Active Substance: MONTELUKAST SODIUM
  14. OMEPRAZOLE [Concomitant]
     Active Substance: OMEPRAZOLE
  15. OXYCODONE HC [Concomitant]
  16. paroxetine  h [Concomitant]
  17. PREDNISONE [Concomitant]
     Active Substance: PREDNISONE
  18. PREDNISONE [Concomitant]
     Active Substance: PREDNISONE
  19. ROFLUMILAST TAB [Concomitant]
  20. ROSUVASTATIN [Concomitant]
     Active Substance: ROSUVASTATIN
  21. SOLiFENACIN TAB [Concomitant]
  22. TRAZODONE TAB HC [Concomitant]
  23. VITAMIN D3 [Concomitant]
     Active Substance: CHOLECALCIFEROL
  24. XANAX TAB [Concomitant]

REACTIONS (2)
  - Drug ineffective [Unknown]
  - No adverse event [Unknown]
